FAERS Safety Report 15384314 (Version 1)
Quarter: 2018Q3

REPORT INFORMATION
  Report Type: Spontaneous
  Country: US (occurrence: US)
  Receive Date: 20180914
  Receipt Date: 20180914
  Transmission Date: 20181010
  Serious: No
  Sender: FDA-Public Use
  Company Number: US-BAUSCH-BL-2018-024848

PATIENT
  Age: 87 Year
  Sex: Female

DRUGS (4)
  1. ILEVRO [Concomitant]
     Active Substance: NEPAFENAC
     Indication: PRODUCT USED FOR UNKNOWN INDICATION
     Route: 047
  2. ASPIRIN. [Concomitant]
     Active Substance: ASPIRIN
     Indication: PRODUCT USED FOR UNKNOWN INDICATION
     Route: 048
  3. LOTEMAX [Suspect]
     Active Substance: LOTEPREDNOL ETABONATE
     Indication: POST PROCEDURAL INFLAMMATION
     Dosage: 1 DROP IN THE RIGHT EYE THREE TIMES DAILY
     Route: 047
     Dates: start: 201804
  4. LOTEMAX [Suspect]
     Active Substance: LOTEPREDNOL ETABONATE
     Indication: SWELLING

REACTIONS (1)
  - Contusion [Unknown]

NARRATIVE: CASE EVENT DATE: 2018
